FAERS Safety Report 4983275-X (Version None)
Quarter: 2006Q2

REPORT INFORMATION
  Report Type: 
  Country: None (occurrence: None)
  Receive Date: 20060419
  Receipt Date: 20060406
  Transmission Date: 20061013
  Serious: Yes (Life-Threatening, Hospitalization)
  Sender: FDA-Public Use
  Company Number: 2006044686

PATIENT
  Age: 56 Year
  Sex: Female
  Weight: 40 kg

DRUGS (11)
  1. SUTENT [Suspect]
     Indication: GASTROINTESTINAL STROMAL TUMOUR
     Dosage: 50 MG (50 MG, EVERYDAY), ORAL
     Route: 048
     Dates: start: 20060303
  2. MAGNESIUM OXIDE (MAGNESIUM OXIDE) [Concomitant]
  3. ALPRAZOLAM [Concomitant]
  4. MORPHINE SULFATE [Concomitant]
  5. TRANEXAMIC ACID (TRANEXAMIC ACID) [Concomitant]
  6. CALCIUM POLYSTYRENE SULFONATE [Concomitant]
  7. LACTULOSE [Concomitant]
  8. TRAMADOL HCL [Concomitant]
  9. FUROSEMIDE [Concomitant]
  10. LABETALOL HYDROCHLORIDE [Concomitant]
  11. PANTOPRAZOLE SODIUM [Concomitant]

REACTIONS (11)
  - ANOREXIA [None]
  - ASPARTATE AMINOTRANSFERASE INCREASED [None]
  - ASTHENIA [None]
  - BLOOD AMYLASE INCREASED [None]
  - BLOOD BILIRUBIN INCREASED [None]
  - DEHYDRATION [None]
  - FATIGUE [None]
  - HYPERTENSION [None]
  - LIPASE INCREASED [None]
  - PLATELET COUNT DECREASED [None]
  - RENAL FAILURE [None]
